FAERS Safety Report 7969408-1 (Version None)
Quarter: 2011Q4

REPORT INFORMATION
  Report Type: 
  Country: None (occurrence: None)
  Receive Date: 20111211
  Receipt Date: 20111128
  Transmission Date: 20120403
  Serious: Yes (Other)
  Sender: FDA-Public Use
  Company Number: TR-MYLANLABS-2011S1024767

PATIENT
  Age: 42 Year
  Sex: Male

DRUGS (10)
  1. SIROLIMUS [Suspect]
     Indication: IMMUNOSUPPRESSION
     Dosage: 2 MG/DAY
     Route: 065
  2. CANDESARTAN CILEXETIL [Concomitant]
     Dosage: 16 MG/DAY
     Route: 065
  3. HYDROCHLOROTHIAZIDE [Concomitant]
     Dosage: 12.5 MG/DAY
     Route: 065
  4. VERAPAMIL [Concomitant]
     Dosage: 240 MG/DAY
     Route: 065
  5. TACROLIMUS [Suspect]
     Indication: IMMUNOSUPPRESSION
     Dosage: 2 G/DAY
     Route: 065
  6. MYCOPHENOLATE MOFETIL [Suspect]
     Indication: IMMUNOSUPPRESSION
     Dosage: 1500 MG/DAY
     Route: 065
  7. PREDNISOLONE [Suspect]
     Indication: IMMUNOSUPPRESSION
     Dosage: 5MG EVERY 2 DAYS
     Route: 065
  8. ACARBOSE [Concomitant]
     Dosage: 150 MG/DAY
     Route: 065
  9. RANITIDINE [Concomitant]
     Dosage: 300 MG/DAY
     Route: 065
  10. ALLOPURINOL [Concomitant]
     Dosage: 300 MG/DAY
     Route: 065

REACTIONS (1)
  - PYODERMA GANGRENOSUM [None]
